FAERS Safety Report 4771455-8 (Version None)
Quarter: 2005Q3

REPORT INFORMATION
  Report Type: 
  Country: None (occurrence: None)
  Receive Date: 20050914
  Receipt Date: 20050902
  Transmission Date: 20060218
  Serious: Yes (Hospitalization, Other)
  Sender: FDA-Public Use
  Company Number: 2005123627

PATIENT
  Age: 53 Year
  Sex: Female
  Weight: 81.6475 kg

DRUGS (15)
  1. NEURONTIN [Suspect]
     Indication: CONVULSION
     Dosage: 600 MG (200 MG, 3 IN 1 D),
  2. NEURONTIN [Suspect]
     Indication: DEPRESSION
     Dosage: 600 MG (200 MG, 3 IN 1 D),
  3. DETROL LA [Suspect]
     Indication: URINARY INCONTINENCE
     Dosage: 4 MG (4 MG, 1 IN 1 D),
  4. DURAGESIC-100 [Concomitant]
  5. AMBIEN [Concomitant]
  6. TRAZODONE (TRAZODONE) [Concomitant]
  7. SYNTHROID [Concomitant]
  8. VALIUM [Concomitant]
  9. TEGRETOL [Concomitant]
  10. BUSPAR [Concomitant]
  11. NEXIUM [Concomitant]
  12. DICYCLOMINE (CICYCLOVERINE) [Concomitant]
  13. PREMARIN [Concomitant]
  14. LEXAPRO [Concomitant]
  15. LIDODERM (LIDOCAINE) [Concomitant]

REACTIONS (4)
  - DIFFICULTY IN WALKING [None]
  - PAIN IN EXTREMITY [None]
  - TOE DEFORMITY [None]
  - URINARY INCONTINENCE [None]
